FAERS Safety Report 12351080 (Version 1)
Quarter: 2016Q2

REPORT INFORMATION
  Report Type: Spontaneous
  Country: US (occurrence: None)
  Receive Date: 20160509
  Receipt Date: 20160509
  Transmission Date: 20160815
  Serious: Yes (Life-Threatening, Other)
  Sender: FDA-Public Use
  Company Number: None

PATIENT
  Age: 7 Year
  Sex: Female
  Weight: 24.04 kg

DRUGS (4)
  1. CHILDRENS^ IBUPROFEN [Concomitant]
  2. ACETAMINOPHEN FOR CHILDREN [Concomitant]
     Active Substance: ACETAMINOPHEN
  3. CHILDENS ALLEGRA [Concomitant]
  4. EQUATE CHILDRENS ALLERGY RELIEF [Suspect]
     Active Substance: CETIRIZINE HYDROCHLORIDE\LORATADINE
     Indication: SEASONAL ALLERGY
     Route: 048
     Dates: start: 20160506, end: 20160507

REACTIONS (1)
  - Seizure [None]

NARRATIVE: CASE EVENT DATE: 20160507
